FAERS Safety Report 18932259 (Version 1)
Quarter: 2021Q1

REPORT INFORMATION
  Report Type: Spontaneous
  Country: ES (occurrence: ES)
  Receive Date: 20210223
  Receipt Date: 20210223
  Transmission Date: 20210420
  Serious: Yes (Hospitalization)
  Sender: FDA-Public Use
  Company Number: ES-AMGEN-ESPSP2021027659

PATIENT
  Age: 32 Year
  Sex: Female
  Weight: 54.6 kg

DRUGS (12)
  1. PERJETA [Suspect]
     Active Substance: PERTUZUMAB
     Indication: BREAST CANCER
     Dosage: 840 MILLIGRAM
     Route: 042
     Dates: start: 20201201
  2. METOCLOPRAMIDE. [Concomitant]
     Active Substance: METOCLOPRAMIDE
     Dosage: 10 MILLIGRAM, Q8H
     Dates: start: 20201215, end: 20201215
  3. TAXOL [Suspect]
     Active Substance: PACLITAXEL
     Indication: BREAST CANCER
     Dosage: 90 MILLIGRAM/SQ. METER
     Route: 042
     Dates: start: 20201201
  4. MORPHINE [Concomitant]
     Active Substance: MORPHINE
     Dosage: 10 MILLIGRAM, Q4H
     Route: 058
     Dates: start: 20201213, end: 20201215
  5. NOLOTIL [METAMIZOLE MAGNESIUM] [Concomitant]
     Active Substance: METAMIZOLE MAGNESIUM
     Dosage: 575 MILLIGRAM, Q8H
     Route: 048
  6. CARBOPLATIN. [Suspect]
     Active Substance: CARBOPLATIN
     Indication: BREAST CANCER
     Dosage: DATE OF MOST RECENT DOSE OF CARBOPLATIN OF 230 MG PRIOR TO SAE ONSET: 08/DEC/2020.ADMINISTERED AT AU
     Route: 042
     Dates: start: 20201201
  7. PERJETA [Suspect]
     Active Substance: PERTUZUMAB
     Dosage: 420 MILLIGRAM
     Route: 042
     Dates: start: 20201201
  8. TRASTUZUMAB. [Suspect]
     Active Substance: TRASTUZUMAB
     Indication: BREAST CANCER
     Dosage: 8 MILLIGRAM/KILOGRAM (LOADING DOSE)
     Route: 042
     Dates: start: 20201201
  9. ONDANSETRON [Concomitant]
     Active Substance: ONDANSETRON
     Dosage: 4 MILLIGRAM, Q8H
     Route: 048
     Dates: start: 20201215, end: 20201215
  10. PARACETAMOL [Concomitant]
     Active Substance: ACETAMINOPHEN
     Dosage: 500 MILLIGRAM, Q8H
     Route: 048
     Dates: start: 20201215, end: 20201215
  11. DEXAMETHASONE. [Concomitant]
     Active Substance: DEXAMETHASONE
     Dosage: 4 MILLIGRAM, Q24H
     Dates: start: 20201215, end: 20201215
  12. TRASTUZUMAB. [Suspect]
     Active Substance: TRASTUZUMAB
     Dosage: 6 MILLIGRAM/KILOGRAM (DATE OF MOST RECENT DOSE OF TRASTUZUMAB 437 MG PRIOR TO SAE ONSET: 01/DEC/2020
     Route: 042

REACTIONS (3)
  - Off label use [Unknown]
  - Abdominal pain [Recovered/Resolved]
  - Subileus [Recovered/Resolved]

NARRATIVE: CASE EVENT DATE: 20201211
